FAERS Safety Report 13262534 (Version 1)
Quarter: 2017Q1

REPORT INFORMATION
  Report Type: Report from Study
  Country: None (occurrence: BR)
  Receive Date: 20170223
  Receipt Date: 20170223
  Transmission Date: 20170428
  Serious: Yes (Hospitalization)
  Sender: FDA-Public Use
  Company Number: BR-ABBVIE-17K-020-1884803-00

PATIENT
  Age: 41 Year
  Sex: Female
  Weight: 72 kg

DRUGS (6)
  1. HUMIRA [Suspect]
     Active Substance: ADALIMUMAB
     Route: 058
  2. FOLIC ACID. [Concomitant]
     Active Substance: FOLIC ACID
     Indication: ARTHRITIS
     Route: 048
     Dates: start: 2012
  3. SIMVASTATIN. [Concomitant]
     Active Substance: SIMVASTATIN
     Indication: BLOOD CHOLESTEROL ABNORMAL
     Route: 048
     Dates: start: 2015
  4. REUQUINOL [Concomitant]
     Active Substance: HYDROXYCHLOROQUINE SULFATE
     Indication: ARTHRITIS
     Route: 048
     Dates: start: 2012
  5. HUMIRA [Suspect]
     Active Substance: ADALIMUMAB
     Indication: RHEUMATOID ARTHRITIS
     Route: 058
     Dates: start: 20161111
  6. METHOTREXATE. [Concomitant]
     Active Substance: METHOTREXATE
     Indication: ARTHRITIS
     Route: 048
     Dates: start: 2012

REACTIONS (2)
  - Varicose vein [Recovered/Resolved]
  - Candida infection [Not Recovered/Not Resolved]

NARRATIVE: CASE EVENT DATE: 20170214
